FAERS Safety Report 5930068-2 (Version None)
Quarter: 2008Q4

REPORT INFORMATION
  Report Type: 
  Country: None (occurrence: None)
  Receive Date: 20081024
  Receipt Date: 20081022
  Transmission Date: 20090506
  Serious: Yes (Hospitalization)
  Sender: FDA-Public Use
  Company Number: JP-B.I. PHARMACEUTICALS,INC./RIDGEFIELD-2008-BP-15716NB

PATIENT
  Age: 75 Year
  Sex: Male

DRUGS (1)
  1. MICARDIS [Suspect]
     Dosage: 80MG
     Route: 048
     Dates: start: 20080410

REACTIONS (2)
  - CARDIAC PACEMAKER INSERTION [None]
  - HYPOGLYCAEMIA [None]
